FAERS Safety Report 20678394 (Version 1)
Quarter: 2022Q2

REPORT INFORMATION
  Report Type: Spontaneous
  Country: US (occurrence: US)
  Receive Date: 20220406
  Receipt Date: 20220406
  Transmission Date: 20220720
  Serious: Yes (Hospitalization)
  Sender: FDA-Public Use
  Company Number: US-MYLANLABS-2022M1024905

PATIENT
  Age: 62 Year
  Sex: Female

DRUGS (4)
  1. TRETINOIN [Suspect]
     Active Substance: TRETINOIN
     Indication: Acute promyelocytic leukaemia
     Dosage: UNK(INITIAL DOSE NOT STATED)
     Route: 065
  2. TRETINOIN [Suspect]
     Active Substance: TRETINOIN
     Dosage: 45 MILLIGRAM/SQ. METER, QD(FOR 5 DAYS IN A WEEK)
     Route: 065
  3. ARSENIC TRIOXIDE [Suspect]
     Active Substance: ARSENIC TRIOXIDE
     Indication: Acute promyelocytic leukaemia
     Dosage: 0.15 MILLIGRAM/KILOGRAM(FOR 5 DAYS IN A WEEK)
     Route: 065
  4. PREDNISONE [Concomitant]
     Active Substance: PREDNISONE
     Indication: Prophylaxis
     Route: 065

REACTIONS (3)
  - Differentiation syndrome [Recovered/Resolved]
  - Myopericarditis [Recovered/Resolved]
  - Off label use [Unknown]
